FAERS Safety Report 24845121 (Version 1)
Quarter: 2025Q1

REPORT INFORMATION
  Report Type: Spontaneous
  Country: AU (occurrence: AU)
  Receive Date: 20250115
  Receipt Date: 20250115
  Transmission Date: 20250408
  Serious: Yes (Other)
  Sender: MYLAN
  Company Number: AU-MYLANLABS-2024M1116851

PATIENT
  Sex: Female

DRUGS (1)
  1. CLOZARIL [Suspect]
     Active Substance: CLOZAPINE
     Indication: Schizophrenia
     Route: 048
     Dates: start: 20241121, end: 20241220

REACTIONS (4)
  - Aortic valve incompetence [Unknown]
  - Tricuspid valve incompetence [Unknown]
  - Left atrial dilatation [Unknown]
  - Aortic dilatation [Unknown]
